FAERS Safety Report 4762004-9 (Version None)
Quarter: 2005Q3

REPORT INFORMATION
  Report Type: 
  Country: None (occurrence: None)
  Receive Date: 20050831
  Receipt Date: 20050504
  Transmission Date: 20060218
  Serious: Yes (Other)
  Sender: FDA-Public Use
  Company Number: PHEH2005US05196

PATIENT
  Sex: Female

DRUGS (1)
  1. ENABLEX [Suspect]
     Indication: BLADDER DISORDER
     Dosage: 7.5 MG, QD, ORAL
     Route: 048

REACTIONS (2)
  - PANIC REACTION [None]
  - URINARY RETENTION [None]
